FAERS Safety Report 21589246 (Version 2)
Quarter: 2023Q1

REPORT INFORMATION
  Report Type: Report from Study
  Country: US (occurrence: US)
  Receive Date: 20221114
  Receipt Date: 20230209
  Transmission Date: 20230418
  Serious: Yes (Other)
  Sender: FDA-Public Use
  Company Number: US-ABBVIE-22K-163-4474795-00

PATIENT
  Age: 72 Year
  Sex: Female
  Weight: 75 kg

DRUGS (16)
  1. HUMIRA [Suspect]
     Active Substance: ADALIMUMAB
     Indication: Rheumatoid arthritis
     Dosage: CITRATE FREE?FORM STRENGTH: 40 MILLIGRAM
     Route: 058
     Dates: start: 20220702, end: 20220714
  2. HUMIRA [Suspect]
     Active Substance: ADALIMUMAB
     Route: 058
     Dates: start: 20220902, end: 20221014
  3. HUMIRA [Suspect]
     Active Substance: ADALIMUMAB
     Dosage: CITRATE FREE?FORM STRENGTH: 40 MILLIGRAM?STOP DATE 2022
     Route: 058
     Dates: start: 20220630
  4. HYDROXYCHLOROQUINE [Concomitant]
     Active Substance: HYDROXYCHLOROQUINE
     Indication: Product used for unknown indication
  5. METHOTREXATE [Concomitant]
     Active Substance: METHOTREXATE
     Indication: Product used for unknown indication
     Dosage: 2 AND A HALF*6?FREQUENCY TEXT:1 WEEK
     Route: 048
     Dates: start: 2021
  6. MODERNA COVID-19 VACCINE [Concomitant]
     Active Substance: ELASOMERAN
     Indication: COVID-19 immunisation
     Dosage: 2ND DOSE
     Route: 030
     Dates: start: 20210319, end: 20210319
  7. MODERNA COVID-19 VACCINE [Concomitant]
     Active Substance: ELASOMERAN
     Indication: COVID-19 immunisation
     Dosage: LAST DOSE
     Route: 030
     Dates: start: 20220713, end: 20220713
  8. MODERNA COVID-19 VACCINE [Concomitant]
     Active Substance: ELASOMERAN
     Indication: COVID-19 immunisation
     Dosage: LAST DOSE
     Route: 030
     Dates: start: 20220713, end: 20220713
  9. MODERNA COVID-19 VACCINE [Concomitant]
     Active Substance: ELASOMERAN
     Indication: COVID-19 immunisation
     Dosage: FIRST DOSE
     Route: 030
     Dates: start: 20210219, end: 20210219
  10. MODERNA COVID-19 VACCINE [Concomitant]
     Active Substance: ELASOMERAN
     Indication: COVID-19 immunisation
     Dosage: 3RD DOSE
     Route: 030
     Dates: start: 20211220, end: 20211220
  11. MODERNA COVID-19 VACCINE [Concomitant]
     Active Substance: ELASOMERAN
     Indication: COVID-19 immunisation
     Dosage: SECOND DOSE
     Route: 030
     Dates: start: 20210319, end: 20210319
  12. MODERNA COVID-19 VACCINE [Concomitant]
     Active Substance: ELASOMERAN
     Indication: COVID-19 immunisation
     Dosage: 1ST DOSE
     Route: 030
     Dates: start: 20210219, end: 20210219
  13. MODERNA COVID-19 VACCINE [Concomitant]
     Active Substance: ELASOMERAN
     Indication: COVID-19 immunisation
     Dosage: THIRD DOSE
     Route: 030
     Dates: start: 20211220, end: 20211220
  14. PREDNISONE [Concomitant]
     Active Substance: PREDNISONE
     Indication: Product used for unknown indication
  15. FOLIC ACID [Concomitant]
     Active Substance: FOLIC ACID
     Indication: Product used for unknown indication
  16. IBUPROFEN [Concomitant]
     Active Substance: IBUPROFEN
     Indication: Product used for unknown indication

REACTIONS (22)
  - Sepsis [Unknown]
  - Urticaria [Unknown]
  - Cardiac disorder [Unknown]
  - Heart rate increased [Unknown]
  - Fear [Unknown]
  - Swollen tongue [Recovered/Resolved]
  - Skin disorder [Not Recovered/Not Resolved]
  - Vulvovaginal mycotic infection [Unknown]
  - Pain [Not Recovered/Not Resolved]
  - Ear pain [Recovered/Resolved]
  - Sinus headache [Recovered/Resolved]
  - Vulvovaginal pain [Unknown]
  - Pneumonia [Unknown]
  - Temporomandibular joint syndrome [Recovered/Resolved]
  - Sinus headache [Unknown]
  - Therapeutic product effect decreased [Unknown]
  - Pain in extremity [Unknown]
  - Ear pain [Unknown]
  - Rheumatoid arthritis [Unknown]
  - Tongue discomfort [Unknown]
  - Chronic cheek biting [Unknown]
  - Fall [Unknown]

NARRATIVE: CASE EVENT DATE: 20220701
